FAERS Safety Report 21467252 (Version 1)
Quarter: 2022Q4

REPORT INFORMATION
  Report Type: Spontaneous
  Country: US (occurrence: None)
  Receive Date: 20221016
  Receipt Date: 20221016
  Transmission Date: 20230112
  Serious: Yes (Disabling)
  Sender: FDA-Public Use
  Company Number: None

PATIENT
  Age: 37 Year
  Sex: Female
  Weight: 122.47 kg

DRUGS (4)
  1. MIRENA [Suspect]
     Active Substance: LEVONORGESTREL
  2. Acetazolomide [Concomitant]
  3. TOPIRAMATE [Concomitant]
     Active Substance: TOPIRAMATE
  4. MEGESTROL ACETATE [Concomitant]
     Active Substance: MEGESTROL ACETATE

REACTIONS (7)
  - Dizziness [None]
  - Gait disturbance [None]
  - Malaise [None]
  - Hypertension [None]
  - Idiopathic intracranial hypertension [None]
  - Impaired work ability [None]
  - Adverse drug reaction [None]

NARRATIVE: CASE EVENT DATE: 20211231
